FAERS Safety Report 8910061 (Version 2)
Quarter: 2013Q1

REPORT INFORMATION
  Report Type: Spontaneous
  Country: US (occurrence: US)
  Receive Date: 20121115
  Receipt Date: 20130110
  Transmission Date: 20140127
  Serious: No
  Sender: FDA-Public Use
  Company Number: US-009507513-1211USA006132

PATIENT
  Sex: Male

DRUGS (3)
  1. VICTRELIS [Suspect]
     Indication: HEPATITIS C
     Dosage: 800 MG, TID
     Route: 048
  2. PEGASYS [Suspect]
     Indication: HEPATITIS C
     Dosage: UNK
  3. RIBAPAK [Suspect]
     Indication: HEPATITIS C
     Dosage: UNK

REACTIONS (5)
  - Dyspepsia [Unknown]
  - Headache [Unknown]
  - Pruritus generalised [Unknown]
  - Fatigue [Unknown]
  - Nausea [Unknown]
